FAERS Safety Report 13619233 (Version 1)
Quarter: 2017Q2

REPORT INFORMATION
  Report Type: Spontaneous
  Country: US (occurrence: US)
  Receive Date: 20170606
  Receipt Date: 20170606
  Transmission Date: 20170830
  Serious: No
  Sender: FDA-Public Use
  Company Number: US-AMGEN-USASP2016160427

PATIENT
  Sex: Male

DRUGS (1)
  1. PROCRIT [Suspect]
     Active Substance: ERYTHROPOIETIN
     Indication: CHRONIC KIDNEY DISEASE
     Dosage: UNK UNK, WEEKLY
     Route: 065

REACTIONS (7)
  - Condition aggravated [Not Recovered/Not Resolved]
  - Hospice care [Unknown]
  - Dehydration [Not Recovered/Not Resolved]
  - Drug dose omission [Unknown]
  - Drug ineffective [Unknown]
  - Vein disorder [Not Recovered/Not Resolved]
  - Haemoglobin abnormal [Unknown]

NARRATIVE: CASE EVENT DATE: 201610
